FAERS Safety Report 7426676-2 (Version None)
Quarter: 2011Q2

REPORT INFORMATION
  Report Type: 
  Country: None (occurrence: None)
  Receive Date: 20110420
  Receipt Date: 20110406
  Transmission Date: 20111010
  Serious: Yes (Other)
  Sender: FDA-Public Use
  Company Number: US-BAYER-2011-030242

PATIENT
  Age: 68 Year
  Sex: Female
  Weight: 77 kg

DRUGS (2)
  1. ASPIRIN [Suspect]
     Dosage: BOTTLE COUNT 400S
     Route: 048
     Dates: start: 20110403, end: 20110406
  2. MUCINEX DM [Concomitant]
     Dosage: 1 DF, BID
     Route: 048
     Dates: start: 20110401, end: 20110406

REACTIONS (2)
  - FAECES DISCOLOURED [None]
  - HAEMATOCHEZIA [None]
